FAERS Safety Report 9752016 (Version 1)
Quarter: 2013Q4

REPORT INFORMATION
  Report Type: Spontaneous
  Country: US (occurrence: None)
  Receive Date: 20131211
  Receipt Date: 20131211
  Transmission Date: 20140711
  Serious: Yes (Disabling)
  Sender: FDA-Public Use
  Company Number: None

PATIENT
  Age: 84 Year
  Sex: Male
  Weight: 83.01 kg

DRUGS (7)
  1. CELEBREX [Suspect]
     Indication: OSTEOARTHRITIS
     Route: 048
     Dates: start: 20130802, end: 20131206
  2. CELEBREX [Suspect]
     Indication: GASTROOESOPHAGEAL REFLUX DISEASE
     Route: 048
     Dates: start: 20130802, end: 20131206
  3. ALBUTEROL MDI [Concomitant]
  4. ALENDRONATE [Concomitant]
  5. APLPROSTADIL SUPPOSITORY [Concomitant]
  6. BUPROPION [Concomitant]
  7. CLONIDINE PATCH [Concomitant]

REACTIONS (1)
  - Cerebrovascular accident [None]
